FAERS Safety Report 14549695 (Version 4)
Quarter: 2019Q3

REPORT INFORMATION
  Report Type: Report from Study
  Country: US (occurrence: US)
  Receive Date: 20180219
  Receipt Date: 20190822
  Transmission Date: 20191004
  Serious: No
  Sender: FDA-Public Use
  Company Number: PHEH2018US006598

PATIENT
  Age: 36 Year
  Sex: Male

DRUGS (5)
  1. GILENYA [Suspect]
     Active Substance: FINGOLIMOD HYDROCHLORIDE
     Dosage: 1 DF, BID (TOOK IN MORNING AND THEN TOOK IT AGAIN THE SAME NIGHT)
     Route: 065
     Dates: start: 20190801
  2. GILENYA [Suspect]
     Active Substance: FINGOLIMOD HYDROCHLORIDE
     Dosage: 0.5 MG, QD
     Route: 048
  3. GILENYA [Suspect]
     Active Substance: FINGOLIMOD HYDROCHLORIDE
     Dosage: UNK
     Route: 065
  4. GILENYA [Suspect]
     Active Substance: FINGOLIMOD HYDROCHLORIDE
     Indication: MULTIPLE SCLEROSIS
     Dosage: 0.5 MG, QD
     Route: 048
     Dates: start: 20180213
  5. GILENYA [Suspect]
     Active Substance: FINGOLIMOD HYDROCHLORIDE
     Dosage: 0.5 MG, QD
     Route: 048
     Dates: start: 20180215

REACTIONS (10)
  - Tinea pedis [Unknown]
  - Heart rate decreased [Recovered/Resolved]
  - Hypoaesthesia [Unknown]
  - Skin lesion [Unknown]
  - Sinus disorder [Unknown]
  - Nasopharyngitis [Unknown]
  - Fungal skin infection [Unknown]
  - Accidental overdose [Recovered/Resolved]
  - Palpitations [Recovered/Resolved]
  - Balance disorder [Unknown]

NARRATIVE: CASE EVENT DATE: 2018
